FAERS Safety Report 9565097 (Version 1)
Quarter: 2013Q3

REPORT INFORMATION
  Report Type: Spontaneous
  Country: US (occurrence: US)
  Receive Date: 20130930
  Receipt Date: 20130930
  Transmission Date: 20140515
  Serious: Yes (Life-Threatening, Hospitalization, Other)
  Sender: FDA-Public Use
  Company Number: US-ELI_LILLY_AND_COMPANY-US201309009413

PATIENT
  Age: 65 Year
  Sex: Male
  Weight: 77.55 kg

DRUGS (3)
  1. HUMALOG LISPRO [Suspect]
     Route: 058
  2. ATIVAN [Suspect]
  3. MORPHINE [Suspect]

REACTIONS (4)
  - Drug hypersensitivity [Unknown]
  - Staphylococcal infection [Unknown]
  - Renal disorder [Unknown]
  - Blood glucose decreased [Unknown]
